FAERS Safety Report 8223117-2 (Version None)
Quarter: 2012Q1

REPORT INFORMATION
  Report Type: 
  Country: None (occurrence: None)
  Receive Date: 20120321
  Receipt Date: 20120313
  Transmission Date: 20120608
  Serious: No
  Sender: FDA-Public Use
  Company Number: US-BIOGENIDEC-2012BI009126

PATIENT
  Age: 30 Year
  Sex: Female

DRUGS (5)
  1. AVONEX [Concomitant]
     Indication: MULTIPLE SCLEROSIS
     Route: 030
     Dates: start: 20010408, end: 20060701
  2. AVONEX [Concomitant]
     Route: 030
     Dates: start: 20061121, end: 20070815
  3. AVONEX [Concomitant]
     Route: 030
  4. TYSABRI [Suspect]
     Indication: MULTIPLE SCLEROSIS
     Route: 042
  5. TYSABRI [Suspect]
     Route: 042
     Dates: start: 20071207

REACTIONS (1)
  - ABDOMINAL PAIN UPPER [None]
